FAERS Safety Report 5465669-1 (Version None)
Quarter: 2007Q3

REPORT INFORMATION
  Report Type: 
  Country: None (occurrence: None)
  Receive Date: 20070924
  Receipt Date: 20070911
  Transmission Date: 20080115
  Serious: Yes (Hospitalization)
  Sender: FDA-Public Use
  Company Number: GB-ROCHE-513233

PATIENT
  Age: 46 Year
  Sex: Female
  Weight: 89.6 kg

DRUGS (5)
  1. ORLISTAT [Suspect]
     Indication: OBESITY
     Route: 048
     Dates: start: 20070507, end: 20070806
  2. ORLISTAT [Suspect]
     Route: 048
     Dates: start: 20070823
  3. BECOTIDE [Concomitant]
     Indication: ASTHMA
     Dosage: FORMULATION REPORTED AS SPRAY.
     Dates: start: 20010101
  4. IRON TABLETS [Concomitant]
     Route: 048
     Dates: start: 20060101
  5. VITAMIN B-12 [Concomitant]
     Route: 048
     Dates: start: 20060101

REACTIONS (3)
  - CHEST PAIN [None]
  - DEHYDRATION [None]
  - HEAT STROKE [None]
